FAERS Safety Report 8031939-6 (Version None)
Quarter: 2012Q1

REPORT INFORMATION
  Report Type: 
  Country: None (occurrence: None)
  Receive Date: 20120109
  Receipt Date: 20110301
  Transmission Date: 20120608
  Serious: No
  Sender: FDA-Public Use
  Company Number: US-ABBOTT-11P-163-0709467-00

PATIENT
  Age: 66 Year
  Sex: Female
  Weight: 88.53 kg

DRUGS (2)
  1. VICODIN [Suspect]
     Indication: FIBROMYALGIA
     Dosage: 5/500MG, 3-5X DAILY PRN, 1/2 TO 1 TAB
     Route: 048
  2. VICODIN [Suspect]
     Indication: ARTHRALGIA

REACTIONS (3)
  - THIRST [None]
  - CONSTIPATION [None]
  - DRUG INEFFECTIVE [None]
